FAERS Safety Report 8121034-X (Version None)
Quarter: 2011Q4

REPORT INFORMATION
  Report Type: 
  Country: None (occurrence: None)
  Receive Date: 20111227
  Receipt Date: 20111012
  Transmission Date: 20120403
  Serious: No
  Sender: FDA-Public Use
  Company Number: PHHY2011US39055

PATIENT
  Age: 32 Year
  Sex: Female
  Weight: 64.4 kg

DRUGS (13)
  1. GILENYA [Suspect]
     Indication: RELAPSING-REMITTING MULTIPLE SCLEROSIS
     Dosage: 0.5 MG, QD, ORAL
     Route: 048
     Dates: start: 20110404
  2. LORAZEPAM [Concomitant]
  3. LORATADINE [Concomitant]
  4. VTAMIN D (ERGOCALCIFEROL) [Concomitant]
  5. ASPIRIN [Concomitant]
  6. FLUTICASONE PROPIONATE [Concomitant]
  7. VITAMIN B12 [Concomitant]
  8. SEROQUEL [Concomitant]
  9. CYMBALTA [Concomitant]
  10. ACETAMINOPHEN [Concomitant]
  11. ACETAMINOPHEN AND OXYCODONE HCL [Concomitant]
  12. CALCIUM CARBONATE [Concomitant]
  13. HYDROCODONE BITARTRATE + ACETAMINOPHEN [Concomitant]

REACTIONS (9)
  - HEADACHE [None]
  - BACK PAIN [None]
  - PAIN [None]
  - INSOMNIA [None]
  - MIGRAINE [None]
  - DIZZINESS [None]
  - DYSPHAGIA [None]
  - COUGH [None]
  - ARTHRALGIA [None]
